FAERS Safety Report 4801396-9 (Version None)
Quarter: 2005Q4

REPORT INFORMATION
  Report Type: 
  Country: None (occurrence: None)
  Receive Date: 20051011
  Receipt Date: 20051011
  Transmission Date: 20060501
  Serious: No
  Sender: FDA-Public Use
  Company Number: None

PATIENT
  Age: 5 Year
  Sex: Female

DRUGS (3)
  1. IMMUNE GLOBULIN (HUMAN) [Suspect]
     Dates: start: 20050925
  2. TRIAMCINOLONE [Concomitant]
  3. ZYRTEC [Concomitant]

REACTIONS (1)
  - RASH PAPULAR [None]
